FAERS Safety Report 11564804 (Version 1)
Quarter: 2015Q3

REPORT INFORMATION
  Report Type: Spontaneous
  Country: US (occurrence: US)
  Receive Date: 20150928
  Receipt Date: 20150928
  Transmission Date: 20151125
  Serious: Yes (Other)
  Sender: FDA-Public Use
  Company Number: US-UCBSA-2015030091

PATIENT
  Age: 86 Year
  Sex: Female

DRUGS (1)
  1. KEPPRA [Suspect]
     Active Substance: LEVETIRACETAM
     Indication: CONVULSION PROPHYLAXIS
     Dosage: UNK
     Dates: start: 2015

REACTIONS (5)
  - Fatigue [Unknown]
  - Amnesia [Unknown]
  - Visual field defect [Unknown]
  - Weight increased [Unknown]
  - Binge eating [Unknown]

NARRATIVE: CASE EVENT DATE: 2015
